FAERS Safety Report 7497579-2 (Version None)
Quarter: 2011Q2

REPORT INFORMATION
  Report Type: 
  Country: None (occurrence: None)
  Receive Date: 20110523
  Receipt Date: 20110519
  Transmission Date: 20111010
  Serious: Yes (Hospitalization)
  Sender: FDA-Public Use
  Company Number: CH-ABBOTT-11P-151-0715311-00

PATIENT
  Age: 1 Year
  Sex: Female
  Weight: 13 kg

DRUGS (1)
  1. CLARITHROMYCIN [Suspect]
     Indication: PNEUMONIA
     Route: 048
     Dates: start: 20110225, end: 20110226

REACTIONS (5)
  - BALANCE DISORDER [None]
  - FALL [None]
  - VERTIGO [None]
  - RESPIRATORY SYNCYTIAL VIRUS INFECTION [None]
  - HYPOAESTHESIA [None]
